FAERS Safety Report 7902101-X (Version None)
Quarter: 2011Q4

REPORT INFORMATION
  Report Type: 
  Country: None (occurrence: None)
  Receive Date: 20111108
  Receipt Date: 20111027
  Transmission Date: 20120403
  Serious: Yes (Hospitalization, Other)
  Sender: FDA-Public Use
  Company Number: US-BAYER-2011-043418

PATIENT
  Sex: Female
  Weight: 108.84 kg

DRUGS (13)
  1. SUCRALFATE [Concomitant]
     Dosage: 1 GM
     Route: 048
     Dates: start: 20101028, end: 20101109
  2. FLUCONAZOLE [Concomitant]
     Dosage: 150 MG
     Route: 048
     Dates: start: 20101004
  3. FLUOXETINE HCL [Concomitant]
     Indication: DEPRESSION
     Dosage: UNK
     Dates: start: 20040101
  4. NAPROXEN SODIUM [Concomitant]
     Dosage: 550 MG
     Dates: start: 20100125
  5. ZOMIG [Concomitant]
     Dosage: 5 MG
     Route: 048
     Dates: start: 20101229
  6. ANTIBIOTICS [Concomitant]
  7. PROVENTIL-HFA [Concomitant]
     Dosage: 90 MCG
     Route: 045
     Dates: start: 20100212
  8. YAZ [Suspect]
     Indication: MENSTRUATION IRREGULAR
     Dosage: UNK
     Dates: start: 20090601, end: 20100101
  9. DICYCLOMINE [Concomitant]
     Dosage: 20 MG
     Route: 048
     Dates: start: 20101008
  10. OMEPRAZOLE [Concomitant]
     Dosage: 20 MG
     Route: 048
  11. NSAID'S [Concomitant]
  12. ALBUTEROL [Concomitant]
     Indication: ASTHMA
     Dosage: UNK
     Dates: start: 20070101
  13. HYDROCODONE BITARTRATE AND ACETAMINOPHEN [Concomitant]
     Dosage: 5-500
     Route: 048

REACTIONS (3)
  - CHOLECYSTITIS CHRONIC [None]
  - PAIN [None]
  - GALLBLADDER DISORDER [None]
